FAERS Safety Report 20485527 (Version 2)
Quarter: 2022Q1

REPORT INFORMATION
  Report Type: Spontaneous
  Country: US (occurrence: US)
  Receive Date: 20220217
  Receipt Date: 20220323
  Transmission Date: 20220423
  Serious: Yes (Other)
  Sender: FDA-Public Use
  Company Number: US-Blueprint Medicines Corporation-SP-US-2022-000380

PATIENT
  Sex: Female

DRUGS (2)
  1. AYVAKIT [Suspect]
     Active Substance: AVAPRITINIB
     Indication: Systemic mastocytosis
     Route: 048
     Dates: start: 20211012
  2. AYVAKIT [Suspect]
     Active Substance: AVAPRITINIB
     Route: 048
     Dates: start: 20220310

REACTIONS (9)
  - Cataract [Unknown]
  - Glaucoma [Unknown]
  - Full blood count decreased [Unknown]
  - Tryptase decreased [Unknown]
  - Vision blurred [Unknown]
  - Blepharitis [Unknown]
  - Eye swelling [Unknown]
  - Fatigue [Unknown]
  - Decreased appetite [Unknown]
